FAERS Safety Report 17485862 (Version 1)
Quarter: 2020Q1

REPORT INFORMATION
  Report Type: Spontaneous
  Country: US (occurrence: US)
  Receive Date: 20200303
  Receipt Date: 20200303
  Transmission Date: 20200409
  Serious: Yes (Other)
  Sender: FDA-Public Use
  Company Number: US-TEVA-2020-US-1191367

PATIENT
  Age: 94 Year
  Sex: Female

DRUGS (2)
  1. CLONAZEPAM ODT [Suspect]
     Active Substance: CLONAZEPAM
     Indication: PANIC ATTACK
     Route: 065
     Dates: start: 20200210
  2. CLONAZEPAM ODT [Suspect]
     Active Substance: CLONAZEPAM
     Indication: ANXIETY

REACTIONS (6)
  - Product solubility abnormal [Unknown]
  - Choking [Unknown]
  - Drug ineffective [Unknown]
  - Blood pressure increased [Unknown]
  - Anxiety [Unknown]
  - Panic attack [Unknown]

NARRATIVE: CASE EVENT DATE: 202002
